FAERS Safety Report 8437454-X (Version None)
Quarter: 2012Q2

REPORT INFORMATION
  Report Type: 
  Country: None (occurrence: None)
  Receive Date: 20120323
  Receipt Date: 20110720
  Transmission Date: 20120825
  Serious: Yes (Hospitalization, Other)
  Sender: FDA-Public Use
  Company Number: 163-21880-11062410

PATIENT
  Age: 69 Year
  Sex: Female

DRUGS (1)
  1. REVLIMID [Suspect]
     Indication: MULTIPLE MYELOMA
     Dosage: 25 MG, DAILY X 21 DAYS, PO
     Route: 048
     Dates: start: 20110101, end: 20110101

REACTIONS (2)
  - COAGULOPATHY [None]
  - FULL BLOOD COUNT ABNORMAL [None]
